FAERS Safety Report 6048433-4 (Version None)
Quarter: 2009Q1

REPORT INFORMATION
  Report Type: 
  Country: None (occurrence: None)
  Receive Date: 20090123
  Receipt Date: 20090116
  Transmission Date: 20090719
  Serious: Yes (Death)
  Sender: FDA-Public Use
  Company Number: A0764610A

PATIENT
  Age: 77 Year
  Sex: Female
  Weight: 47.7 kg

DRUGS (2)
  1. AVANDIA [Suspect]
     Route: 048
     Dates: start: 20060101, end: 20070101
  2. ADVIL LIQUI-GELS [Concomitant]

REACTIONS (1)
  - CARDIAC ARREST [None]
